FAERS Safety Report 16540345 (Version 2)
Quarter: 2019Q3

REPORT INFORMATION
  Report Type: Report from Study
  Country: GB (occurrence: GB)
  Receive Date: 20190708
  Receipt Date: 20190722
  Transmission Date: 20191004
  Serious: Yes (Hospitalization)
  Sender: FDA-Public Use
  Company Number: GB-PFIZER INC-2019282670

PATIENT

DRUGS (1)
  1. ZOMACTON [Suspect]
     Active Substance: SOMATROPIN
     Indication: HYPOPITUITARISM
     Dosage: UNK
     Route: 065

REACTIONS (9)
  - Wrong technique in device usage process [Unknown]
  - Off label use [Unknown]
  - Cerebrovascular accident [Unknown]
  - Injection site bruising [Unknown]
  - Asthenia [Unknown]
  - Nausea [Unknown]
  - Product use issue [Unknown]
  - Injection site extravasation [Unknown]
  - Headache [Unknown]
